FAERS Safety Report 10637942 (Version 1)
Quarter: 2014Q4

REPORT INFORMATION
  Report Type: Spontaneous
  Country: US (occurrence: None)
  Receive Date: 20141204
  Receipt Date: 20141204
  Transmission Date: 20150529
  Serious: Yes (Hospitalization)
  Sender: FDA-Public Use
  Company Number: None

PATIENT
  Age: 61 Year
  Sex: Female
  Weight: 93.8 kg

DRUGS (12)
  1. MONTALUKAST [Concomitant]
  2. LATANOPROST. [Concomitant]
     Active Substance: LATANOPROST
  3. VALSARTAN. [Concomitant]
     Active Substance: VALSARTAN
  4. SOFOSBUVIR [Suspect]
     Active Substance: SOFOSBUVIR
     Indication: HEPATITIS C
     Route: 048
     Dates: start: 20140806, end: 20141028
  5. ALBUTEROL SULFATE. [Concomitant]
     Active Substance: ALBUTEROL SULFATE
  6. SIMEPREVIR [Suspect]
     Active Substance: SIMEPREVIR
     Indication: HEPATITIS C
     Route: 048
     Dates: start: 20140806, end: 20141028
  7. SPIRONOLACTONE. [Concomitant]
     Active Substance: SPIRONOLACTONE
  8. FUROSEMIDE. [Concomitant]
     Active Substance: FUROSEMIDE
  9. RIFAXIMIN [Concomitant]
     Active Substance: RIFAXIMIN
  10. LACTULOSE. [Concomitant]
     Active Substance: LACTULOSE
  11. NADOLOL. [Concomitant]
     Active Substance: NADOLOL
  12. OMEPRAZOLE. [Concomitant]
     Active Substance: OMEPRAZOLE

REACTIONS (5)
  - Cough [None]
  - Chest discomfort [None]
  - No therapeutic response [None]
  - Cardiac failure congestive [None]
  - Upper respiratory tract infection [None]

NARRATIVE: CASE EVENT DATE: 20141020
